FAERS Safety Report 12859419 (Version 10)
Quarter: 2017Q4

REPORT INFORMATION
  Report Type: Report from Study
  Country: US (occurrence: US)
  Receive Date: 20161018
  Receipt Date: 20171102
  Transmission Date: 20180320
  Serious: Yes (Hospitalization, Other)
  Sender: FDA-Public Use
  Company Number: US-SA-2016SA181025

PATIENT
  Age: 57 Year
  Sex: Female

DRUGS (7)
  1. PREDNISONE. [Suspect]
     Active Substance: PREDNISONE
     Route: 065
  2. PROZAC [Concomitant]
     Active Substance: FLUOXETINE HYDROCHLORIDE
  3. PROZAC [Concomitant]
     Active Substance: FLUOXETINE HYDROCHLORIDE
  4. AUBAGIO [Concomitant]
     Active Substance: TERIFLUNOMIDE
  5. LEMTRADA [Suspect]
     Active Substance: ALEMTUZUMAB
     Indication: MULTIPLE SCLEROSIS
     Route: 041
     Dates: start: 20160926, end: 20160930
  6. LEMTRADA [Suspect]
     Active Substance: ALEMTUZUMAB
     Indication: MULTIPLE SCLEROSIS
     Route: 041
     Dates: start: 20171004, end: 20171006
  7. VALACICLOVIR [Concomitant]
     Active Substance: VALACYCLOVIR HYDROCHLORIDE
     Dosage: EVERY EVENING

REACTIONS (38)
  - Chest pain [Not Recovered/Not Resolved]
  - Lung infiltration [Unknown]
  - Disorientation [Not Recovered/Not Resolved]
  - Feeling abnormal [Not Recovered/Not Resolved]
  - Sinus congestion [Unknown]
  - Lymphocyte count abnormal [Unknown]
  - Hot flush [Not Recovered/Not Resolved]
  - Respiratory tract infection [Not Recovered/Not Resolved]
  - Cough [Not Recovered/Not Resolved]
  - Dyspnoea [Unknown]
  - Pleurisy [Not Recovered/Not Resolved]
  - Dyspnoea [Unknown]
  - Aggression [Not Recovered/Not Resolved]
  - Panic attack [Not Recovered/Not Resolved]
  - Hypopnoea [Unknown]
  - Malaise [Not Recovered/Not Resolved]
  - Fatigue [Not Recovered/Not Resolved]
  - Pulmonary pain [Not Recovered/Not Resolved]
  - Pulmonary mass [Unknown]
  - Pruritus [Recovered/Resolved]
  - Chronic obstructive pulmonary disease [Unknown]
  - Adrenal disorder [Not Recovered/Not Resolved]
  - Insomnia [Not Recovered/Not Resolved]
  - Pneumonitis [Recovering/Resolving]
  - Renal failure [Not Recovered/Not Resolved]
  - Weight increased [Not Recovered/Not Resolved]
  - Memory impairment [Not Recovered/Not Resolved]
  - Stress [Unknown]
  - Loss of consciousness [Unknown]
  - Pneumonia necrotising [Recovering/Resolving]
  - Chest discomfort [Unknown]
  - Immune system disorder [Recovering/Resolving]
  - Balance disorder [Not Recovered/Not Resolved]
  - Productive cough [Unknown]
  - Night sweats [Not Recovered/Not Resolved]
  - Pyrexia [Recovered/Resolved]
  - Condition aggravated [Not Recovered/Not Resolved]
  - Weight decreased [Unknown]

NARRATIVE: CASE EVENT DATE: 2016
